FAERS Safety Report 15083989 (Version 2)
Quarter: 2018Q4

REPORT INFORMATION
  Report Type: Report from Study
  Country: None (occurrence: US)
  Receive Date: 20180628
  Receipt Date: 20181006
  Transmission Date: 20190204
  Serious: Yes (Other)
  Sender: FDA-Public Use
  Company Number: US-ABBVIE-18K-163-2399684-00

PATIENT
  Sex: Male
  Weight: 110.78 kg

DRUGS (1)
  1. HUMIRA [Suspect]
     Active Substance: ADALIMUMAB
     Indication: PSORIASIS
     Route: 058
     Dates: start: 20180101

REACTIONS (2)
  - Extrasystoles [Unknown]
  - Drug ineffective [Unknown]
